FAERS Safety Report 20460727 (Version 2)
Quarter: 2022Q1

REPORT INFORMATION
  Report Type: Spontaneous
  Country: US (occurrence: US)
  Receive Date: 20220211
  Receipt Date: 20220302
  Transmission Date: 20220423
  Serious: Yes (Hospitalization)
  Sender: FDA-Public Use
  Company Number: US-GW PHARMA-202202USGW00578

PATIENT
  Sex: Male

DRUGS (23)
  1. EPIDIOLEX [Suspect]
     Active Substance: CANNABIDIOL
     Indication: Epilepsy
     Dosage: 350 MILLIGRAM, BID
     Route: 048
     Dates: start: 202106, end: 20220105
  2. EPIDIOLEX [Suspect]
     Active Substance: CANNABIDIOL
     Indication: Epilepsy
     Dosage: 400 MILLIGRAM, BID
     Route: 048
     Dates: start: 20220106
  3. ALBUTEROL SULFATE [Concomitant]
     Active Substance: ALBUTEROL SULFATE
     Indication: Product used for unknown indication
     Dosage: USE 1 VIAL PER NEBULIZER 3 TIMES A DAY AND UPTO EVERY 4 HOURS AS NEEDED (STRENGTH: 0.083 %)
     Dates: start: 20220103
  4. ALBUTEROL SULFATE [Concomitant]
     Active Substance: ALBUTEROL SULFATE
     Indication: Product used for unknown indication
     Dosage: 2 PUFF, Q4H (AS NEEDED)
     Dates: start: 20210621
  5. AMINOCAPROIC ACID [Concomitant]
     Active Substance: AMINOCAPROIC ACID
     Indication: Product used for unknown indication
     Dosage: UNK
     Dates: start: 20191002
  6. AZELASTINE [Concomitant]
     Active Substance: AZELASTINE
     Indication: Product used for unknown indication
     Dosage: 1 SPRAY, QD (AS DIRECTED)
     Route: 045
     Dates: start: 20211206
  7. DIETARY SUPPLEMENT [Concomitant]
     Active Substance: DIETARY SUPPLEMENT
     Indication: Product used for unknown indication
     Dosage: 21 GRAM, QD (AS DIRECTED FOR 30 DAYS); STRENGTH: 6 GRAM-25 KCAL/7 GRAM
     Route: 048
     Dates: start: 20200831
  8. CETIRIZINE HYDROCHLORIDE [Concomitant]
     Active Substance: CETIRIZINE HYDROCHLORIDE
     Indication: Product used for unknown indication
     Dosage: 1 DOSAGE FORM, QD (CRUSH 1 TABLET, SUSPEND IN 5 ML WATER)
     Dates: start: 20211214
  9. CLOBAZAM [Concomitant]
     Active Substance: CLOBAZAM
     Indication: Product used for unknown indication
     Dosage: 10 MILLILITER, BID
     Route: 048
     Dates: start: 20220107
  10. OMEPRAZOLE [Concomitant]
     Active Substance: OMEPRAZOLE
     Indication: Product used for unknown indication
     Dosage: 10 MILLILITER, BID (FORMULATION: SUSPENSION-NAHCO3 POW)
     Route: 048
     Dates: start: 20200506
  11. DIAZEPAM [Concomitant]
     Active Substance: DIAZEPAM
     Indication: Seizure
     Dosage: 7.5 MG AS NEEDED PER RECTUM LASTING MORE THAN 5 MINUTES
     Route: 054
     Dates: start: 20170405
  12. ELECARE JR [Concomitant]
     Indication: Product used for unknown indication
     Dosage: 270 GRAM, QD FOR 30 DAYS; 14.3 GRAM-469 KCAL/100 GRAM
     Route: 048
     Dates: start: 20190504
  13. FLUTICASONE PROPIONATE [Concomitant]
     Active Substance: FLUTICASONE PROPIONATE
     Indication: Product used for unknown indication
     Dosage: 1 SPRAY IN EACH NOSTRIL, QD AS DIRECTED FOR 30 DAYS
     Route: 045
     Dates: start: 20220102
  14. FOLIC ACID [Concomitant]
     Active Substance: FOLIC ACID
     Indication: Product used for unknown indication
     Dosage: 1 TABLET, QD
     Dates: start: 20211231
  15. IPRATROPIUM BROMIDE [Concomitant]
     Active Substance: IPRATROPIUM BROMIDE
     Indication: Product used for unknown indication
     Dosage: 1 VIAL WITH NEBULIZER EVERY 8 HOURS AS NEEDED
     Dates: start: 20211225
  16. LEVETIRACETAM [Concomitant]
     Active Substance: LEVETIRACETAM
     Indication: Product used for unknown indication
     Dosage: 15 MILLILITER, BID
     Dates: start: 20211229
  17. LEVOTHYROXINE [Concomitant]
     Active Substance: LEVOTHYROXINE
     Indication: Product used for unknown indication
     Dosage: 0.5 TABLET (62.5 MCG), QD
     Route: 065
     Dates: start: 20211211
  18. MUPIROCIN [Concomitant]
     Active Substance: MUPIROCIN
     Indication: Product used for unknown indication
     Dosage: UNK
     Route: 061
     Dates: start: 20210806
  19. OMEPRAZOLE [Concomitant]
     Active Substance: OMEPRAZOLE
     Indication: Product used for unknown indication
     Dosage: UNK
     Route: 065
     Dates: start: 20220103
  20. POLY-VI-SOL [VITAMINS NOS] [Concomitant]
     Indication: Product used for unknown indication
     Dosage: 2 MILLILITER, QD (STRENGTH: 750 UNIT-35 MG-400 UNIT/ML)
     Dates: start: 20150703
  21. POLYETHYLENE GLYCOL 3350 [Concomitant]
     Active Substance: POLYETHYLENE GLYCOL 3350
     Indication: Product used for unknown indication
     Dosage: MIX 17 GRAMS IN 8 OUNCES OF FLUID TWICE DAILY
     Dates: start: 20211231
  22. SODIUM CHLORIDE [Concomitant]
     Active Substance: SODIUM CHLORIDE
     Indication: Product used for unknown indication
     Dosage: 3 MILLILITER, BID FOR 30 DAYS (STRENGTH: 0.9%)
     Dates: start: 20210323, end: 20211210
  23. SODIUM CHLORIDE [Concomitant]
     Active Substance: SODIUM CHLORIDE
     Dosage: MIX 1 VIAL WITH 1 VIAL OF 0.9% SALINE AND GIVE 3 ML PER NEBULIZER TWICE A DAY AFTER ALBUTEROL
     Dates: start: 20211211

REACTIONS (2)
  - COVID-19 [Recovered/Resolved]
  - Seizure [Recovered/Resolved]
